FAERS Safety Report 19416876 (Version 1)
Quarter: 2021Q2

REPORT INFORMATION
  Report Type: Spontaneous
  Country: US (occurrence: US)
  Receive Date: 20210614
  Receipt Date: 20210614
  Transmission Date: 20210717
  Serious: No
  Sender: FDA-Public Use
  Company Number: None

PATIENT
  Age: 36 Year
  Sex: Male
  Weight: 96 kg

DRUGS (1)
  1. PAROXETINE (PAROXETINE HCL 10MG TAB) [Suspect]
     Active Substance: PAROXETINE HYDROCHLORIDE
     Indication: DEPRESSION
     Route: 048
     Dates: start: 20180912, end: 20190228

REACTIONS (3)
  - Palpitations [None]
  - Hypertension [None]
  - Sexual dysfunction [None]

NARRATIVE: CASE EVENT DATE: 20190227
